FAERS Safety Report 23496657 (Version 10)
Quarter: 2024Q4

REPORT INFORMATION
  Report Type: Spontaneous
  Country: US (occurrence: US)
  Receive Date: 20240207
  Receipt Date: 20241219
  Transmission Date: 20250114
  Serious: Yes (Hospitalization)
  Sender: ROCHE
  Company Number: US-ROCHE-3415443

PATIENT
  Age: 52 Year
  Sex: Female
  Weight: 104.33 kg

DRUGS (3)
  1. XOLAIR PFS [Suspect]
     Active Substance: OMALIZUMAB
     Indication: Asthma
     Dosage: STRENGTH: 150 MG/ML
     Route: 058
     Dates: start: 201910
  2. XOLAIR PFS [Suspect]
     Active Substance: OMALIZUMAB
  3. TAKHZYRO [Concomitant]
     Active Substance: LANADELUMAB-FLYO

REACTIONS (9)
  - Gastrointestinal disorder [Recovered/Resolved]
  - Ill-defined disorder [Recovered/Resolved]
  - Pharyngeal disorder [Recovered/Resolved]
  - Influenza [Unknown]
  - Dehydration [Unknown]
  - Weight increased [Unknown]
  - White blood cell count increased [Unknown]
  - Weight decreased [Unknown]
  - Swelling [Unknown]

NARRATIVE: CASE EVENT DATE: 20240226
